FAERS Safety Report 13169480 (Version 2)
Quarter: 2017Q1

REPORT INFORMATION
  Report Type: Spontaneous
  Country: US (occurrence: US)
  Receive Date: 20170201
  Receipt Date: 20170305
  Transmission Date: 20170428
  Serious: No
  Sender: FDA-Public Use
  Company Number: US-ASTRAZENECA-2017SE07847

PATIENT
  Sex: Female

DRUGS (2)
  1. TUDORZA PRESSAIR [Suspect]
     Active Substance: ACLIDINIUM BROMIDE
     Route: 055
     Dates: start: 2016
  2. BREO ELLIPTA [Concomitant]
     Active Substance: FLUTICASONE FUROATE\VILANTEROL TRIFENATATE
     Indication: INHALATION THERAPY
     Dosage: 100 PER 25 MCG ONE PUFF DAILY.
     Route: 055

REACTIONS (5)
  - Intentional device misuse [Unknown]
  - Lacrimation increased [Unknown]
  - Eye pain [Unknown]
  - Rhinorrhoea [Unknown]
  - Oral mucosal blistering [Unknown]
